FAERS Safety Report 23089785 (Version 1)
Quarter: 2023Q4

REPORT INFORMATION
  Report Type: Spontaneous
  Country: US (occurrence: US)
  Receive Date: 20231020
  Receipt Date: 20231020
  Transmission Date: 20240110
  Serious: Yes (Hospitalization, Other)
  Sender: FDA-Public Use
  Company Number: US-OTSUKA-2023_026954

PATIENT
  Age: 17 Year
  Sex: Female

DRUGS (2)
  1. REXULTI [Suspect]
     Active Substance: BREXPIPRAZOLE
     Indication: Major depression
     Dosage: UNK
     Route: 065
  2. REXULTI [Suspect]
     Active Substance: BREXPIPRAZOLE
     Indication: Adjuvant therapy

REACTIONS (4)
  - Myocardial infarction [Recovering/Resolving]
  - Abdominal pain upper [Recovering/Resolving]
  - Adverse drug reaction [Unknown]
  - Akathisia [Recovering/Resolving]
